FAERS Safety Report 26214935 (Version 1)
Quarter: 2025Q4

REPORT INFORMATION
  Report Type: Spontaneous
  Country: CA (occurrence: CA)
  Receive Date: 20251230
  Receipt Date: 20251230
  Transmission Date: 20260117
  Serious: Yes (Other)
  Sender: BIOMARIN
  Company Number: CA-BIOMARINAP-CA-2025-170864

PATIENT
  Age: 8 Year
  Sex: Female
  Weight: 17.3 kg

DRUGS (1)
  1. VIMIZIM [Suspect]
     Active Substance: ELOSULFASE ALFA
     Indication: Mucopolysaccharidosis IV
     Dosage: 35 MILLIGRAM, QW
     Dates: start: 20210325

REACTIONS (5)
  - Spinal stenosis [Not Recovered/Not Resolved]
  - Joint deformity [Unknown]
  - Pain in extremity [Unknown]
  - Dislocation of vertebra [Unknown]
  - Device malfunction [Unknown]

NARRATIVE: CASE EVENT DATE: 20250101
